FAERS Safety Report 10632702 (Version 2)
Quarter: 2014Q4

REPORT INFORMATION
  Report Type: Spontaneous
  Country: US (occurrence: US)
  Receive Date: 20141205
  Receipt Date: 20141205
  Transmission Date: 20150529
  Serious: No
  Sender: FDA-Public Use
  Company Number: US-BRISTOL-MYERS SQUIBB COMPANY-18083824

PATIENT
  Age: 52 Year
  Sex: Female

DRUGS (7)
  1. EXENATIDE 10MCG PEN, DISPOSABLE DEVICE [Concomitant]
     Active Substance: EXENATIDE
  2. GLIMEPIRIDE. [Concomitant]
     Active Substance: GLIMEPIRIDE
     Indication: INSULIN-REQUIRING TYPE 2 DIABETES MELLITUS
  3. BYETTA [Suspect]
     Active Substance: EXENATIDE
     Indication: INSULIN-REQUIRING TYPE 2 DIABETES MELLITUS
     Dosage: EXP DATE: MAY15, JUN15
     Route: 058
  4. EXENATIDE 10MCG PEN, DISPOSABLE DEVICE [Concomitant]
     Active Substance: EXENATIDE
  5. CORTISONE [Concomitant]
     Active Substance: CORTISONE\HYDROCORTISONE
  6. EXENATIDE 10MCG PEN, DISPOSABLE DEVICE [Concomitant]
     Active Substance: EXENATIDE
  7. LANTUS [Concomitant]
     Active Substance: INSULIN GLARGINE
     Indication: INSULIN-REQUIRING TYPE 2 DIABETES MELLITUS

REACTIONS (9)
  - Pain in extremity [Unknown]
  - Extra dose administered [Recovered/Resolved]
  - Tremor [Unknown]
  - Dizziness [Unknown]
  - Pollakiuria [Unknown]
  - Blood glucose increased [Unknown]
  - Thirst [Unknown]
  - Accidental exposure to product [Unknown]
  - Somnolence [Unknown]

NARRATIVE: CASE EVENT DATE: 20080903
